FAERS Safety Report 6109223-7 (Version None)
Quarter: 2009Q1

REPORT INFORMATION
  Report Type: 
  Country: None (occurrence: None)
  Receive Date: 20090310
  Receipt Date: 20090305
  Transmission Date: 20090719
  Serious: Yes (Other)
  Sender: FDA-Public Use
  Company Number: 10506186

PATIENT
  Age: 64 Year
  Sex: Female

DRUGS (1)
  1. TAXOL [Suspect]
     Indication: NEOPLASM MALIGNANT
     Route: 042
     Dates: start: 20000412, end: 20000412

REACTIONS (1)
  - DERMATITIS CONTACT [None]
